FAERS Safety Report 14769641 (Version 1)
Quarter: 2018Q2

REPORT INFORMATION
  Report Type: Other
  Country: BE (occurrence: BE)
  Receive Date: 20180417
  Receipt Date: 20180417
  Transmission Date: 20180711
  Serious: Yes (Hospitalization, Other)
  Sender: FDA-Public Use
  Company Number: BE-GLENMARK PHARMACEUTICALS-2018GMK034328

PATIENT

DRUGS (2)
  1. ESOMEPRAZOLE SODIUM. [Suspect]
     Active Substance: ESOMEPRAZOLE SODIUM
     Indication: ARTHRALGIA
     Dosage: UNK
     Route: 042
  2. DICLOFENAC SODIUM. [Suspect]
     Active Substance: DICLOFENAC SODIUM
     Indication: ARTHRALGIA
     Dosage: UNK
     Route: 065

REACTIONS (2)
  - Glomerulonephritis rapidly progressive [Recovering/Resolving]
  - Tubulointerstitial nephritis [Recovering/Resolving]
